FAERS Safety Report 5629071-1 (Version None)
Quarter: 2008Q1

REPORT INFORMATION
  Report Type: 
  Country: None (occurrence: None)
  Receive Date: 20080216
  Receipt Date: 20071218
  Transmission Date: 20080703
  Serious: Yes (Death)
  Sender: FDA-Public Use
  Company Number: US-PURDUE-USA_2007_0031643

PATIENT
  Sex: Male

DRUGS (1)
  1. OXYCONTIN [Suspect]
     Indication: PAIN IN EXTREMITY
     Dates: start: 19990101, end: 20000401

REACTIONS (1)
  - DRUG DEPENDENCE [None]
